FAERS Safety Report 21682266 (Version 1)
Quarter: 2022Q4

REPORT INFORMATION
  Report Type: Spontaneous
  Country: PT (occurrence: PT)
  Receive Date: 20221205
  Receipt Date: 20221205
  Transmission Date: 20230112
  Serious: Yes (Hospitalization, Other)
  Sender: FDA-Public Use
  Company Number: PT-CELLTRION INC.-2022PT020079

PATIENT

DRUGS (1)
  1. TRASTUZUMAB [Suspect]
     Active Substance: TRASTUZUMAB
     Indication: Breast cancer
     Dosage: UNK

REACTIONS (4)
  - Nephrotic syndrome [Unknown]
  - Gastrointestinal amyloidosis [Unknown]
  - Hypersensitivity [Unknown]
  - Drug hypersensitivity [Unknown]
